FAERS Safety Report 6990824-9 (Version None)
Quarter: 2010Q3

REPORT INFORMATION
  Report Type: 
  Country: None (occurrence: None)
  Receive Date: 20100916
  Receipt Date: 20100831
  Transmission Date: 20110219
  Serious: Yes (Death, Hospitalization, Other)
  Sender: FDA-Public Use
  Company Number: FI-PFIZER INC-2009277308

PATIENT
  Sex: Male

DRUGS (6)
  1. LYRICA [Suspect]
     Indication: NEURALGIA
     Dosage: 150 MG, 2X/DAY
     Dates: start: 20070101
  2. LYRICA [Suspect]
     Indication: BACK PAIN
  3. CITALOPRAM [Concomitant]
     Dosage: UNK
  4. IMOVANE [Concomitant]
     Dosage: UNK
  5. RISOLID [Concomitant]
     Dosage: UNK
  6. LEVOZIN [Concomitant]
     Indication: INSOMNIA
     Dosage: UNK

REACTIONS (10)
  - CARDIAC DISORDER [None]
  - DRUG ABUSE [None]
  - DRUG TOXICITY [None]
  - ELECTROCARDIOGRAM QT PROLONGED [None]
  - FALL [None]
  - OVERDOSE [None]
  - PNEUMONIA [None]
  - PULMONARY OEDEMA [None]
  - RETCHING [None]
  - RHABDOMYOLYSIS [None]
